FAERS Safety Report 24754484 (Version 1)
Quarter: 2024Q4

REPORT INFORMATION
  Report Type: Spontaneous
  Country: US (occurrence: US)
  Receive Date: 20241219
  Receipt Date: 20241219
  Transmission Date: 20250115
  Serious: No
  Sender: PFIZER
  Company Number: US-SEATTLE GENETICS-2024SGN04665

PATIENT
  Age: 53 Year
  Sex: Female

DRUGS (1)
  1. TUKYSA [Suspect]
     Active Substance: TUCATINIB
     Indication: Rectosigmoid cancer
     Dosage: TAKE TWO TABS BY MOUTH TWICE DAILY
     Route: 048

REACTIONS (3)
  - Stomatitis [Unknown]
  - Lip blister [Unknown]
  - Product dose omission issue [Unknown]
